FAERS Safety Report 12428849 (Version 1)
Quarter: 2016Q2

REPORT INFORMATION
  Report Type: Spontaneous
  Country: US (occurrence: None)
  Receive Date: 20160601
  Receipt Date: 20160601
  Transmission Date: 20160815
  Serious: Yes (Hospitalization)
  Sender: FDA-Public Use
  Company Number: None

PATIENT
  Age: 65 Year
  Sex: Female
  Weight: 54.4 kg

DRUGS (1)
  1. CIPROFLOXACIN 400MG [Suspect]
     Active Substance: CIPROFLOXACIN

REACTIONS (2)
  - Haematuria [None]
  - Bladder disorder [None]

NARRATIVE: CASE EVENT DATE: 20160503
